FAERS Safety Report 9761295 (Version 1)
Quarter: 2013Q4

REPORT INFORMATION
  Report Type: Spontaneous
  Country: US (occurrence: US)
  Receive Date: 20131216
  Receipt Date: 20131216
  Transmission Date: 20140711
  Serious: No
  Sender: FDA-Public Use
  Company Number: US-PFIZER INC-2013355832

PATIENT
  Sex: Female

DRUGS (2)
  1. LEVOXYL [Suspect]
     Dosage: UNK
  2. LEVOTHYROXINE [Suspect]
     Dosage: UNK

REACTIONS (4)
  - Malaise [Unknown]
  - Fatigue [Unknown]
  - Product physical consistency issue [Unknown]
  - Feeling abnormal [Unknown]
